FAERS Safety Report 12604398 (Version 1)
Quarter: 2016Q3

REPORT INFORMATION
  Report Type: Other
  Country: US (occurrence: US)
  Receive Date: 20160728
  Receipt Date: 20160728
  Transmission Date: 20161109
  Serious: Yes (Hospitalization)
  Sender: FDA-Public Use
  Company Number: US-SHIRE-2016DX000246

PATIENT
  Age: 20 Year
  Sex: Female

DRUGS (3)
  1. KALBITOR [Suspect]
     Active Substance: ECALLANTIDE
     Indication: HEREDITARY ANGIOEDEMA
     Route: 065
  2. KALBITOR [Suspect]
     Active Substance: ECALLANTIDE
     Route: 065
  3. DANAZOL. [Concomitant]
     Active Substance: DANAZOL
     Indication: HEREDITARY ANGIOEDEMA
     Route: 065

REACTIONS (2)
  - Hereditary angioedema [Recovered/Resolved]
  - Renal impairment [Recovered/Resolved]
